FAERS Safety Report 24926209 (Version 1)
Quarter: 2025Q1

REPORT INFORMATION
  Report Type: Spontaneous
  Country: CN (occurrence: CN)
  Receive Date: 20250205
  Receipt Date: 20250205
  Transmission Date: 20250408
  Serious: Yes (Hospitalization)
  Sender: ROCHE
  Company Number: CN-ROCHE-10000192803

PATIENT
  Age: 48 Year
  Sex: Female

DRUGS (1)
  1. PERTUZUMAB [Suspect]
     Active Substance: PERTUZUMAB
     Indication: Breast cancer
     Route: 040
     Dates: start: 20241124, end: 20241124

REACTIONS (1)
  - Heart rate increased [Recovering/Resolving]

NARRATIVE: CASE EVENT DATE: 20241124
